FAERS Safety Report 20960319 (Version 1)
Quarter: 2022Q2

REPORT INFORMATION
  Report Type: Report from Study
  Country: CA (occurrence: CA)
  Receive Date: 20220615
  Receipt Date: 20220615
  Transmission Date: 20220721
  Serious: Yes (Other)
  Sender: FDA-Public Use
  Company Number: CA-BRISTOL-MYERS SQUIBB COMPANY-2022-048722

PATIENT
  Age: 74 Year
  Sex: Male

DRUGS (4)
  1. OPDIVO [Suspect]
     Active Substance: NIVOLUMAB
     Indication: Oesophageal carcinoma
     Route: 042
     Dates: start: 20220518
  2. PANTOPRAZOLE SODIUM [Concomitant]
     Active Substance: PANTOPRAZOLE SODIUM
     Indication: Product used for unknown indication
     Route: 065
  3. ROSUVASTATIN CALCIUM [Concomitant]
     Active Substance: ROSUVASTATIN CALCIUM
     Indication: Product used for unknown indication
     Dosage: UNK
     Route: 065
  4. PMS METOPROLOL [Concomitant]
     Indication: Product used for unknown indication
     Route: 065

REACTIONS (17)
  - Chapped lips [Unknown]
  - Paraesthesia [Unknown]
  - Hypoaesthesia [Unknown]
  - Aphthous ulcer [Unknown]
  - Neuralgia [Recovered/Resolved]
  - Balance disorder [Unknown]
  - Productive cough [Unknown]
  - Constipation [Unknown]
  - Decreased appetite [Unknown]
  - Abdominal pain [Recovered/Resolved]
  - Fatigue [Unknown]
  - Nausea [Unknown]
  - Tinnitus [Not Recovered/Not Resolved]
  - Burning sensation [Unknown]
  - Dyschezia [Unknown]
  - Sleep disorder [Unknown]
  - Glaucoma [Unknown]
